FAERS Safety Report 13583812 (Version 1)
Quarter: 2017Q2

REPORT INFORMATION
  Report Type: Spontaneous
  Country: PT (occurrence: PT)
  Receive Date: 20170526
  Receipt Date: 20170526
  Transmission Date: 20170830
  Serious: Yes (Hospitalization)
  Sender: FDA-Public Use
  Company Number: PT-ROCHE-1939892

PATIENT
  Age: 52 Year
  Sex: Male

DRUGS (2)
  1. XOLAIR [Suspect]
     Active Substance: OMALIZUMAB
     Dosage: MAXIMUM DOSE
     Route: 065
     Dates: start: 20170427
  2. XOLAIR [Suspect]
     Active Substance: OMALIZUMAB
     Indication: ASTHMA
     Dosage: MAXIMUM DOSE
     Route: 065
     Dates: start: 20170414

REACTIONS (2)
  - Arthralgia [Recovering/Resolving]
  - Movement disorder [Unknown]
